FAERS Safety Report 6719684-8 (Version None)
Quarter: 2010Q2

REPORT INFORMATION
  Report Type: 
  Country: None (occurrence: None)
  Receive Date: 20100507
  Receipt Date: 20100422
  Transmission Date: 20101027
  Serious: Yes (Other)
  Sender: FDA-Public Use
  Company Number: 2010S1000110-002

PATIENT
  Age: 74 Year
  Sex: Female

DRUGS (7)
  1. GLIBENCLAMIDE [Suspect]
     Indication: DIABETES MELLITUS
     Dosage: PO
     Route: 048
  2. PITAVASTATIN [Concomitant]
  3. TELMISARTAN [Concomitant]
  4. BENIDIPINE HYDROCHLORIDE [Concomitant]
  5. METFORMIN HCL [Concomitant]
  6. ACARBOSE [Concomitant]
  7. PIOGLITAZONE HCL [Concomitant]

REACTIONS (1)
  - HYPOGLYCAEMIA [None]
